FAERS Safety Report 13172618 (Version 2)
Quarter: 2017Q1

REPORT INFORMATION
  Report Type: Spontaneous
  Country: JP (occurrence: JP)
  Receive Date: 20170201
  Receipt Date: 20170214
  Transmission Date: 20170428
  Serious: Yes (Disabling, Other)
  Sender: FDA-Public Use
  Company Number: JP-GLAXOSMITHKLINE-JP2017JPN010630

PATIENT
  Age: 60 Year
  Sex: Male

DRUGS (8)
  1. ESOMEPRAZOLE MAGNESIUM HYDRATE [Concomitant]
     Dosage: 20 MG, QD
  2. MEDICON (DEXTROMETHORPHAN HYDROBROMIDE HYDRATE) [Concomitant]
     Dosage: 30 MG, TID
     Dates: start: 20170111
  3. SAMITREL [Suspect]
     Active Substance: ATOVAQUONE
     Indication: ANTIFUNGAL PROPHYLAXIS
  4. PREDNISOLONE. [Concomitant]
     Active Substance: PREDNISOLONE
     Dosage: 25 MG, QD
  5. OFEV [Concomitant]
     Active Substance: NINTEDANIB
     Dosage: 150 MG, BID
  6. SAMITREL [Suspect]
     Active Substance: ATOVAQUONE
     Indication: PNEUMOCYSTIS JIROVECII PNEUMONIA
     Dosage: 750 MG, BID
     Route: 048
     Dates: start: 20170111
  7. OPSO [Interacting]
     Active Substance: MORPHINE HYDROCHLORIDE
     Indication: DYSPNOEA
     Dosage: 5 MG, PRN, BEFORE SLEEP
     Route: 048
     Dates: start: 20170119
  8. ABILIFY [Concomitant]
     Active Substance: ARIPIPRAZOLE
     Dosage: 6 MG, PRN
     Dates: start: 20170126

REACTIONS (3)
  - Somnolence [Recovered/Resolved]
  - Drug interaction [Unknown]
  - Decreased appetite [Unknown]

NARRATIVE: CASE EVENT DATE: 20170119
